FAERS Safety Report 8199421-3 (Version None)
Quarter: 2012Q1

REPORT INFORMATION
  Report Type: 
  Country: None (occurrence: None)
  Receive Date: 20120309
  Receipt Date: 20120229
  Transmission Date: 20120608
  Serious: Yes (Death, Other)
  Sender: FDA-Public Use
  Company Number: PHEH2012US003648

PATIENT
  Sex: Female
  Weight: 68.266 kg

DRUGS (18)
  1. DECADRON [Concomitant]
  2. HYDROXYZINE [Concomitant]
  3. ATARAX [Concomitant]
     Indication: PRURITUS
  4. CALCIUM [Concomitant]
  5. PRILOSEC [Concomitant]
     Indication: PRURITUS
  6. ACETAMINOPHEN AND OXYCODONE HCL [Concomitant]
  7. RADIATION THERAPY [Concomitant]
  8. IBUPROFEN [Concomitant]
     Indication: PAIN
  9. IRON [Concomitant]
  10. MULTI-VITAMINS [Concomitant]
  11. LIDOCAINE W/PRILOCAINE [Concomitant]
  12. COMPAZINE [Concomitant]
     Indication: NAUSEA
  13. METHADON HCL TAB [Concomitant]
  14. ZOLPIDEM [Concomitant]
     Indication: INSOMNIA
  15. LACTOBACILLUS [Concomitant]
  16. DEXAMETHASONE [Concomitant]
  17. ZOMETA [Suspect]
     Dosage: 4 MG/5ML, QMO
  18. PERCOCET [Concomitant]
     Indication: PAIN

REACTIONS (18)
  - METASTASES TO LIVER [None]
  - HYPERCALCAEMIA OF MALIGNANCY [None]
  - BRAIN NEOPLASM MALIGNANT [None]
  - HYPOAESTHESIA [None]
  - CLOSTRIDIUM DIFFICILE COLITIS [None]
  - NEOPLASM MALIGNANT [None]
  - HEPATIC ENZYME INCREASED [None]
  - ANAEMIA [None]
  - NERVE COMPRESSION [None]
  - BLOOD UREA INCREASED [None]
  - NEOPLASM PROGRESSION [None]
  - BONE NEOPLASM MALIGNANT [None]
  - MALIGNANT NEOPLASM OF SPINAL CORD [None]
  - PAIN IN EXTREMITY [None]
  - LETHARGY [None]
  - DECREASED APPETITE [None]
  - PRURITUS GENERALISED [None]
  - FATIGUE [None]
